FAERS Safety Report 14312053 (Version 1)
Quarter: 2017Q4

REPORT INFORMATION
  Report Type: Other
  Country: IT (occurrence: IT)
  Receive Date: 20171221
  Receipt Date: 20171221
  Transmission Date: 20180321
  Serious: Yes (Hospitalization)
  Sender: FDA-Public Use
  Company Number: IT-MACLEODS PHARMACEUTICALS US LTD-MAC2017007065

PATIENT

DRUGS (3)
  1. LITHIUM CARBONATE. [Concomitant]
     Active Substance: LITHIUM CARBONATE
     Indication: PRODUCT USED FOR UNKNOWN INDICATION
     Dosage: UNK
     Route: 065
  2. ARIPIPRAZOLE TABLET [Suspect]
     Active Substance: ARIPIPRAZOLE
     Indication: SCHIZOAFFECTIVE DISORDER
     Dosage: 20 MG, SINGLE (1 TOTAL)
     Route: 048
     Dates: start: 20170919, end: 20170921
  3. CARBAMAZEPINE TABLETS [Suspect]
     Active Substance: CARBAMAZEPINE
     Indication: PRODUCT USED FOR UNKNOWN INDICATION
     Dosage: 800 MG, QD
     Route: 048
     Dates: start: 20170823, end: 20170925

REACTIONS (8)
  - Lymphadenopathy [Recovered/Resolved]
  - Splenomegaly [Recovered/Resolved]
  - Rash [Recovered/Resolved]
  - Hepatomegaly [Recovered/Resolved]
  - Pyrexia [Recovered/Resolved]
  - Hypertransaminasaemia [Unknown]
  - Eosinophilia [Unknown]
  - Skin exfoliation [Unknown]

NARRATIVE: CASE EVENT DATE: 20170921
